FAERS Safety Report 6961417 (Version 5)
Quarter: 2013Q1

REPORT INFORMATION
  Report Type: Spontaneous
  Country: US (occurrence: US)
  Receive Date: 20050701
  Receipt Date: 20130123
  Transmission Date: 20140127
  Serious: Yes (Hospitalization, Other)
  Sender: FDA-Public Use
  Company Number: US-PFIZER INC-2005091438

PATIENT
  Age: 66 Year
  Sex: Female

DRUGS (9)
  1. PROVERA [Suspect]
     Indication: HORMONE REPLACEMENT THERAPY
     Dosage: 5 MG,
     Route: 048
     Dates: start: 1975, end: 1995
  2. PROVERA [Suspect]
     Dosage: 10 MG, UNK
     Route: 048
     Dates: start: 1975, end: 1995
  3. MEDROXYPROGESTERONE ACETATE [Suspect]
     Indication: HORMONE REPLACEMENT THERAPY
     Dosage: 5 MG,
     Route: 048
     Dates: start: 1975, end: 1995
  4. MEDROXYPROGESTERONE ACETATE [Suspect]
     Dosage: 10 MG, UNK
     Route: 048
     Dates: start: 1975, end: 1995
  5. PREMARIN [Suspect]
     Indication: HORMONE REPLACEMENT THERAPY
     Dosage: 0.625 MG,
     Route: 048
     Dates: start: 1975, end: 1995
  6. PREMARIN [Suspect]
     Dosage: 1.25 MG,
     Route: 048
     Dates: start: 1975, end: 1995
  7. PREMPRO [Suspect]
     Indication: HORMONE REPLACEMENT THERAPY
     Dosage: 0.625MG/2.5MG,
     Route: 048
     Dates: start: 1995, end: 200207
  8. OGEN [Suspect]
     Indication: HORMONE REPLACEMENT THERAPY
     Dosage: UNK
     Dates: start: 1975, end: 200207
  9. MEDROXYPROGESTERONE ACETATE [Suspect]
     Indication: HORMONE REPLACEMENT THERAPY
     Dosage: UNK

REACTIONS (2)
  - Breast cancer female [Unknown]
  - Emotional distress [Unknown]
